FAERS Safety Report 7185427-X (Version None)
Quarter: 2010Q4

REPORT INFORMATION
  Report Type: 
  Country: None (occurrence: None)
  Receive Date: 20101222
  Receipt Date: 20101213
  Transmission Date: 20110411
  Serious: Yes (Hospitalization)
  Sender: FDA-Public Use
  Company Number: JP-SANOFI-AVENTIS-2010SA058262

PATIENT
  Age: 28 Year
  Sex: Female
  Weight: 49 kg

DRUGS (4)
  1. MYSLEE [Suspect]
     Indication: ANXIETY DISORDER
     Route: 048
     Dates: start: 20090122, end: 20090202
  2. TOLEDOMIN [Suspect]
     Indication: ANXIETY DISORDER
     Route: 048
     Dates: start: 20090122, end: 20090202
  3. PAXIL [Concomitant]
     Indication: ANXIETY DISORDER
     Route: 048
  4. MEILAX [Concomitant]
     Indication: ANXIETY DISORDER
     Route: 048

REACTIONS (2)
  - ERYTHEMA MULTIFORME [None]
  - PERIVASCULAR DERMATITIS [None]
